FAERS Safety Report 7052395-0 (Version None)
Quarter: 2010Q4

REPORT INFORMATION
  Report Type: 
  Country: None (occurrence: None)
  Receive Date: 20101019
  Receipt Date: 20101015
  Transmission Date: 20110411
  Serious: Yes (Death)
  Sender: FDA-Public Use
  Company Number: PHFR2010GB01347

PATIENT
  Sex: Female

DRUGS (5)
  1. ACLASTA [Suspect]
     Dosage: 5 MG
     Route: 042
     Dates: start: 20100602
  2. LEVOTHYROXINE SODIUM [Concomitant]
     Dosage: 100 MG, QD
     Dates: start: 20100602
  3. FRUSEMIDE [Concomitant]
     Dosage: 40 MG, UNK
     Route: 048
  4. ADCAL-D3 [Concomitant]
     Route: 048
  5. PREGABALIN [Concomitant]
     Dosage: 150 MG, BID
     Route: 048

REACTIONS (1)
  - PNEUMONIA [None]
